FAERS Safety Report 19646018 (Version 1)
Quarter: 2021Q3

REPORT INFORMATION
  Report Type: Spontaneous
  Country: DE (occurrence: DE)
  Receive Date: 20210802
  Receipt Date: 20210802
  Transmission Date: 20211014
  Serious: Yes (Death, Other)
  Sender: FDA-Public Use
  Company Number: DE-ACCORD-233483

PATIENT
  Age: 68 Year
  Sex: Female

DRUGS (5)
  1. FLUOROURACIL. [Concomitant]
     Active Substance: FLUOROURACIL
     Indication: DUCTAL ADENOCARCINOMA OF PANCREAS
     Dates: start: 201807
  2. OXALIPLATIN. [Suspect]
     Active Substance: OXALIPLATIN
     Indication: DUCTAL ADENOCARCINOMA OF PANCREAS
     Dates: start: 201807
  3. IRINOTECAN [Concomitant]
     Active Substance: IRINOTECAN
     Indication: DUCTAL ADENOCARCINOMA OF PANCREAS
     Dosage: REDUCED TO 75% OF THE INITIAL DOSE
     Dates: start: 2018
  4. IRINOTECAN [Concomitant]
     Active Substance: IRINOTECAN
     Indication: DUCTAL ADENOCARCINOMA OF PANCREAS
     Dates: start: 201807
  5. FOLINIC ACID [Concomitant]
     Active Substance: LEUCOVORIN
     Indication: DUCTAL ADENOCARCINOMA OF PANCREAS
     Dates: start: 201807

REACTIONS (3)
  - Off label use [Unknown]
  - Polyneuropathy [Unknown]
  - Dysaesthesia pharynx [Unknown]

NARRATIVE: CASE EVENT DATE: 2018
